FAERS Safety Report 17925117 (Version 2)
Quarter: 2020Q3

REPORT INFORMATION
  Report Type: Report from Study
  Country: None (occurrence: AU)
  Receive Date: 20200622
  Receipt Date: 20200701
  Transmission Date: 20201103
  Serious: Yes (Hospitalization, Disabling)
  Sender: FDA-Public Use
  Company Number: AU-ABBVIE-20P-008-3445694-00

PATIENT
  Age: 66 Year
  Sex: Male
  Weight: 169 kg

DRUGS (29)
  1. VENETOCLAX. [Suspect]
     Active Substance: VENETOCLAX
     Indication: MYELODYSPLASTIC SYNDROME
     Route: 048
     Dates: start: 20190218
  2. CRESTOR [Concomitant]
     Active Substance: ROSUVASTATIN CALCIUM
     Indication: HYPERLIPIDAEMIA
     Route: 048
     Dates: start: 2015
  3. VALACICLOVIR [Concomitant]
     Active Substance: VALACYCLOVIR HYDROCHLORIDE
     Indication: PROPHYLAXIS
     Route: 048
     Dates: start: 20190928
  4. ALLOPURINOL. [Concomitant]
     Active Substance: ALLOPURINOL
     Route: 048
     Dates: start: 202001
  5. INDOMETHACIN. [Concomitant]
     Active Substance: INDOMETHACIN
     Indication: GOUT
     Dosage: 25?50 MG
     Route: 048
     Dates: start: 20191112
  6. PROTAPHANE [Concomitant]
     Active Substance: INSULIN HUMAN
     Indication: HYPERGLYCAEMIA
     Dosage: DOSE VARIES
     Route: 030
     Dates: start: 20191119
  7. PARACETAMOL [Concomitant]
     Active Substance: ACETAMINOPHEN
     Indication: ARTHRITIS
     Route: 048
     Dates: start: 20191209
  8. AMPHOTERICIN B, LIPOSOME [Concomitant]
     Active Substance: AMPHOTERICIN B
     Indication: ANTIFUNGAL PROPHYLAXIS
     Route: 042
     Dates: start: 20200513
  9. INDACETROL [Concomitant]
     Indication: CHRONIC OBSTRUCTIVE PULMONARY DISEASE
     Dosage: 110/50 UG
     Route: 055
     Dates: start: 201506
  10. PERINDOPRIL [Concomitant]
     Active Substance: PERINDOPRIL
     Indication: BLOOD PRESSURE MEASUREMENT
     Route: 048
     Dates: start: 20190604
  11. AZACITIDINE. [Suspect]
     Active Substance: AZACITIDINE
     Indication: MYELODYSPLASTIC SYNDROME
     Dosage: DAYS 1?5, 8 AND 9 OF EACH CYCLE
     Route: 058
     Dates: start: 20190218, end: 20190730
  12. ALLOPURINOL. [Concomitant]
     Active Substance: ALLOPURINOL
     Route: 048
     Dates: start: 20191112, end: 202001
  13. RYZODEG 70/30 [Concomitant]
     Active Substance: INSULIN ASPART\INSULIN DEGLUDEC
     Indication: TYPE 2 DIABETES MELLITUS
     Dosage: 70/30
     Route: 058
     Dates: start: 20191118
  14. COLCHICINE. [Concomitant]
     Active Substance: COLCHICINE
     Indication: PAIN
     Dosage: 0.5?1 MG
     Route: 048
     Dates: start: 20190119
  15. AZACITIDINE. [Suspect]
     Active Substance: AZACITIDINE
     Route: 058
     Dates: start: 20190902, end: 20191004
  16. AZACITIDINE. [Suspect]
     Active Substance: AZACITIDINE
     Route: 058
     Dates: start: 20200512
  17. METOCLOPRAMIDE. [Concomitant]
     Active Substance: METOCLOPRAMIDE
     Indication: PROPHYLAXIS OF NAUSEA AND VOMITING
     Dosage: D1?5 AND D8?9 EACH CYCLE, PLUS 10MG TDS PRN
     Route: 048
     Dates: start: 20190211
  18. PREDNISONE. [Concomitant]
     Active Substance: PREDNISONE
     Indication: ARTHRALGIA
     Dosage: 10?50 MG
     Route: 048
     Dates: start: 20200101
  19. TRULICITY [Concomitant]
     Active Substance: DULAGLUTIDE
     Indication: DIABETES MELLITUS
     Route: 058
     Dates: start: 20190625
  20. NOVORAPID [Concomitant]
     Active Substance: INSULIN ASPART
     Indication: HYPERGLYCAEMIA
     Dosage: VARIABLE DOSES
     Route: 030
     Dates: start: 20191119
  21. AZACITIDINE. [Suspect]
     Active Substance: AZACITIDINE
     Route: 058
     Dates: start: 20191104, end: 20200224
  22. RESPRIM [Concomitant]
     Active Substance: SULFAMETHOXAZOLE\TRIMETHOPRIM
     Indication: ANTIFUNGAL PROPHYLAXIS
     Dosage: 400/80 MG
     Route: 048
     Dates: start: 20190218
  23. ALLOPURINOL. [Concomitant]
     Active Substance: ALLOPURINOL
     Indication: GOUT
     Route: 048
     Dates: start: 20190218, end: 20190225
  24. PROTAPHANE [Concomitant]
     Active Substance: INSULIN HUMAN
     Indication: DIABETES MELLITUS
  25. GLICLAZIDE [Concomitant]
     Active Substance: GLICLAZIDE
     Indication: TYPE 2 DIABETES MELLITUS
     Route: 048
     Dates: start: 20191118
  26. AZACITIDINE. [Suspect]
     Active Substance: AZACITIDINE
     Route: 058
     Dates: start: 20191008, end: 20191009
  27. INDOMETHACIN. [Concomitant]
     Active Substance: INDOMETHACIN
     Indication: ARTHRITIS
  28. NOVORAPID [Concomitant]
     Active Substance: INSULIN ASPART
     Indication: DIABETES MELLITUS
  29. ENDONE [Concomitant]
     Active Substance: OXYCODONE HYDROCHLORIDE
     Indication: GOUT
     Route: 048
     Dates: start: 20191209

REACTIONS (1)
  - Lymph gland infection [Recovered/Resolved]

NARRATIVE: CASE EVENT DATE: 20200612
